FAERS Safety Report 16793323 (Version 1)
Quarter: 2019Q3

REPORT INFORMATION
  Report Type: Report from Study
  Country: None (occurrence: US)
  Receive Date: 20190911
  Receipt Date: 20190911
  Transmission Date: 20191005
  Serious: Yes (Hospitalization)
  Sender: FDA-Public Use
  Company Number: US-ABBVIE-19K-163-2915913-00

PATIENT
  Sex: Male
  Weight: 54.93 kg

DRUGS (2)
  1. HUMIRA [Suspect]
     Active Substance: ADALIMUMAB
     Indication: COLITIS ULCERATIVE
  2. HUMIRA [Suspect]
     Active Substance: ADALIMUMAB
     Indication: CROHN^S DISEASE
     Route: 058
     Dates: start: 2010, end: 201510

REACTIONS (5)
  - Pain [Unknown]
  - Adverse drug reaction [Unknown]
  - Gait inability [Unknown]
  - Haemorrhage [Unknown]
  - Weight decreased [Unknown]
